FAERS Safety Report 6373436-X (Version None)
Quarter: 2009Q3

REPORT INFORMATION
  Report Type: 
  Country: None (occurrence: None)
  Receive Date: 20090924
  Receipt Date: 20090309
  Transmission Date: 20100115
  Serious: No
  Sender: FDA-Public Use
  Company Number: US-ASTRAZENECA-2009UW06187

PATIENT

DRUGS (2)
  1. SEROQUEL [Suspect]
     Dosage: UNKNOWN
     Route: 048
  2. LAMICTAL [Concomitant]

REACTIONS (1)
  - PAROSMIA [None]
